FAERS Safety Report 7433242-1 (Version None)
Quarter: 2011Q2

REPORT INFORMATION
  Report Type: 
  Country: None (occurrence: None)
  Receive Date: 20110415
  Receipt Date: 20110404
  Transmission Date: 20111010
  Serious: Yes (Other)
  Sender: FDA-Public Use
  Company Number: DSJ-2011-00658

PATIENT
  Age: 77 Year
  Sex: Female

DRUGS (4)
  1. BENICAR HCT [Suspect]
     Indication: HYPERTENSION
     Dosage: 40/12.5 MG (1 IN 1 D), PER ORAL
     Route: 048
     Dates: start: 20070806
  2. PINDOLOL (PINDOLOL) (PINDOLOL) [Concomitant]
  3. FLUOXETINE [Concomitant]
  4. LANZOPRAZOLE (LANSOPRAZOLE) (LANSOPRAZOLE) [Concomitant]

REACTIONS (2)
  - WRIST FRACTURE [None]
  - FALL [None]
